FAERS Safety Report 4658765-X (Version None)
Quarter: 2005Q2

REPORT INFORMATION
  Report Type: 
  Country: None (occurrence: None)
  Receive Date: 20050511
  Receipt Date: 20050408
  Transmission Date: 20051028
  Serious: Yes (Other)
  Sender: FDA-Public Use
  Company Number: PHFR2005GB01460

PATIENT
  Sex: Male

DRUGS (8)
  1. GLEEVEC [Suspect]
     Indication: EOSINOPHILIC LEUKAEMIA
     Dosage: 100MG/DAY
     Route: 048
     Dates: start: 20041223
  2. RAMIPRIL [Concomitant]
  3. ALLOPURINOL [Concomitant]
  4. FRUSEMIDE [Concomitant]
  5. CIMETIDINE [Concomitant]
  6. FOLIC ACID [Concomitant]
  7. ACETAMINOPHEN [Concomitant]
  8. MONTELUKAST [Concomitant]

REACTIONS (2)
  - ABDOMINAL PAIN [None]
  - CHOLECYSTITIS [None]
